FAERS Safety Report 6224680-3 (Version None)
Quarter: 2009Q2

REPORT INFORMATION
  Report Type: 
  Country: None (occurrence: None)
  Receive Date: 20090612
  Receipt Date: 20090326
  Transmission Date: 20091009
  Serious: No
  Sender: FDA-Public Use
  Company Number: US-ABBOTT-09P-163-0564805-00

PATIENT
  Sex: Male
  Weight: 124.85 kg

DRUGS (4)
  1. HUMIRA [Suspect]
     Indication: RHEUMATOID ARTHRITIS
     Route: 058
     Dates: start: 20090101
  2. MOBIC [Concomitant]
     Indication: INFLAMMATION
  3. LIPITOR [Concomitant]
     Indication: DRUG USE FOR UNKNOWN INDICATION
  4. UNNAMED PROSTATE MEDICATION [Concomitant]
     Indication: PROSTATIC DISORDER

REACTIONS (3)
  - ARTHRALGIA [None]
  - INJECTION SITE IRRITATION [None]
  - MUSCULOSKELETAL STIFFNESS [None]
